FAERS Safety Report 4884363-9 (Version None)
Quarter: 2006Q1

REPORT INFORMATION
  Report Type: 
  Country: None (occurrence: None)
  Receive Date: 20060117
  Receipt Date: 20060117
  Transmission Date: 20060701
  Serious: Yes (Hospitalization)
  Sender: FDA-Public Use
  Company Number: None

PATIENT
  Age: 71 Year
  Sex: Male

DRUGS (11)
  1. TERAZOSIN 2 MG (SANDOZ) [Suspect]
     Indication: HYPERTENSION
     Dosage: 2 MG QD PO
     Route: 048
     Dates: start: 20040501, end: 20050301
  2. ZOCOR [Concomitant]
  3. LASIX [Concomitant]
  4. NORVASC [Concomitant]
  5. LOPRESSOR [Concomitant]
  6. FLONASE [Concomitant]
  7. TESSALON [Concomitant]
  8. VIAGRA [Concomitant]
  9. TYLENOL W/ CODEINE NO. 3 [Concomitant]
  10. CLARITIN [Concomitant]
  11. GUAIFENESIN [Concomitant]

REACTIONS (1)
  - DIZZINESS [None]
